FAERS Safety Report 9539276 (Version 1)
Quarter: 2013Q3

REPORT INFORMATION
  Report Type: Spontaneous
  Country: TR (occurrence: None)
  Receive Date: 20130917
  Receipt Date: 20130917
  Transmission Date: 20140515
  Serious: Yes (Other)
  Sender: FDA-Public Use
  Company Number: PD 190

PATIENT
  Age: 15 None
  Sex: Male

DRUGS (1)
  1. PSEUDOEPHEDRINE [Suspect]
     Indication: NASOPHARYNGITIS
     Dosage: 60MG, TWICE.DAY,ORAL
     Route: 048

REACTIONS (3)
  - Myocardial infarction [None]
  - Drug level increased [None]
  - Acute coronary syndrome [None]
